FAERS Safety Report 25682828 (Version 2)
Quarter: 2025Q3

REPORT INFORMATION
  Report Type: Spontaneous
  Country: UA (occurrence: UA)
  Receive Date: 20250814
  Receipt Date: 20250919
  Transmission Date: 20251020
  Serious: Yes (Life-Threatening)
  Sender: ALEXION PHARMACEUTICALS
  Company Number: UA-AstraZeneca-CH-00928092AP

PATIENT
  Age: 70 Year
  Sex: Male
  Weight: 100 kg

DRUGS (1)
  1. LYNPARZA [Suspect]
     Active Substance: OLAPARIB
     Indication: Prostate cancer stage IV
     Dosage: 150 MILLIGRAM, BID
     Dates: start: 20250619, end: 20250812

REACTIONS (10)
  - Prostatic specific antigen increased [Not Recovered/Not Resolved]
  - Drug ineffective [Not Recovered/Not Resolved]
  - Asthenia [Not Recovered/Not Resolved]
  - Hyperhidrosis [Not Recovered/Not Resolved]
  - Hot flush [Not Recovered/Not Resolved]
  - Mood swings [Not Recovered/Not Resolved]
  - Apathy [Not Recovered/Not Resolved]
  - Aggression [Not Recovered/Not Resolved]
  - Renal pain [Not Recovered/Not Resolved]
  - Bone pain [Not Recovered/Not Resolved]

NARRATIVE: CASE EVENT DATE: 20250703
